FAERS Safety Report 4608412-8 (Version None)
Quarter: 2005Q1

REPORT INFORMATION
  Report Type: 
  Country: None (occurrence: None)
  Receive Date: 20050311
  Receipt Date: 20050311
  Transmission Date: 20050727
  Serious: Yes (Death)
  Sender: FDA-Public Use
  Company Number: None

PATIENT
  Age: 62 Year
  Sex: Female
  Weight: 53 kg

DRUGS (7)
  1. IRESSA [Suspect]
     Indication: LUNG NEOPLASM MALIGNANT
     Dosage: 250 MG DAILY
     Dates: start: 20050112, end: 20050209
  2. FASLODEX [Suspect]
     Indication: LUNG NEOPLASM MALIGNANT
     Dosage: 500 MG DAY 1, 250 MG DAY 8 250 MONTHLY
     Dates: start: 20050112, end: 20050126
  3. IBUPROFEN [Concomitant]
  4. TIAZAC [Concomitant]
  5. NITROGLYCERIN [Concomitant]
  6. LORAZEPAM [Concomitant]
  7. ZANTAC [Concomitant]

REACTIONS (1)
  - CONDITION AGGRAVATED [None]
